FAERS Safety Report 7751006-6 (Version None)
Quarter: 2011Q3

REPORT INFORMATION
  Report Type: 
  Country: None (occurrence: None)
  Receive Date: 20110912
  Receipt Date: 20110901
  Transmission Date: 20111222
  Serious: Yes (Hospitalization, Disabling, Other)
  Sender: FDA-Public Use
  Company Number: ACO_26455_2011

PATIENT
  Age: 67 Year
  Sex: Female
  Weight: 72.6 kg

DRUGS (3)
  1. MULTIVITAMIN [Concomitant]
  2. AMPYRA [Suspect]
     Indication: GAIT DISTURBANCE
     Dosage: 10 MG, QD, ORAL
     Route: 048
     Dates: start: 20110801, end: 20110801
  3. SOLU-MEDROL [Concomitant]

REACTIONS (3)
  - INAPPROPRIATE SCHEDULE OF DRUG ADMINISTRATION [None]
  - ABASIA [None]
  - MULTIPLE SCLEROSIS RELAPSE [None]
